FAERS Safety Report 9250915 (Version 1)
Quarter: 2013Q1

REPORT INFORMATION
  Report Type: Spontaneous
  Country: US (occurrence: None)
  Receive Date: 20130305
  Receipt Date: 20130305
  Transmission Date: 20140127
  Serious: Yes (Other)
  Sender: FDA-Public Use
  Company Number: 163-21880-12082512

PATIENT
  Age: 47 Year
  Sex: Female

DRUGS (15)
  1. REVLIMID [Suspect]
     Indication: PLASMA CELL MYELOMA
     Dates: start: 20120629
  2. ZOLPIDEM (ZOLPIDEM) [Concomitant]
  3. CYCLOPHOSPHAMIDE [Concomitant]
  4. CLOTRIMAZOLE [Concomitant]
  5. DEXAMETHASONE [Concomitant]
  6. METHADONE [Concomitant]
  7. ZOMETA (ZOLEDRONIC ACID) [Concomitant]
  8. GABAPENTIN (GABAPENTIN) [Concomitant]
  9. LORAZEPAM [Concomitant]
  10. ONDANSETRON [Concomitant]
  11. PROCHLORPERAZINE (PROCHLORPERAZINE) [Concomitant]
  12. TRIAMETERENE-HCTZ (DYAZIDE) [Concomitant]
  13. HYDROCODONE [Concomitant]
  14. VITAMIN D [Concomitant]
  15. VELCADE [Concomitant]

REACTIONS (2)
  - Nausea [None]
  - Diarrhoea [None]
